FAERS Safety Report 7150069 (Version 2)
Quarter: 2012Q4

REPORT INFORMATION
  Report Type: 
  Country: CA (occurrence: CA)
  Receive Date: 20091015
  Receipt Date: 20121107
  Transmission Date: 20130627
  Serious: Yes (Other)
  Sender: FDA-Public Use
  Company Number: PHHY2009CA43276

PATIENT
  Sex: Female

DRUGS (1)
  1. SANDOSTATIN LAR [Suspect]
     Indication: CARCINOID TUMOUR
     Dosage: 30 mg, Evey 4 weeks
     Route: 030
     Dates: start: 20080117

REACTIONS (7)
  - Dehydration [Unknown]
  - Flushing [Unknown]
  - Bone pain [Unknown]
  - Weight decreased [Unknown]
  - Diarrhoea [Unknown]
  - Blood glucose abnormal [Unknown]
  - Asthenia [Unknown]
